FAERS Safety Report 24023445 (Version 1)
Quarter: 2024Q2

REPORT INFORMATION
  Report Type: Report from Study
  Country: CN (occurrence: CN)
  Receive Date: 20240627
  Receipt Date: 20240627
  Transmission Date: 20240716
  Serious: No
  Sender: FDA-Public Use
  Company Number: CN-ROCHE-3163646

PATIENT
  Age: 56 Year
  Sex: Female
  Weight: 58.0 kg

DRUGS (3)
  1. ALECTINIB [Suspect]
     Active Substance: ALECTINIB
     Indication: Non-small cell lung cancer
     Route: 048
     Dates: start: 20210629
  2. AFATINIB DIMALEATE [Concomitant]
     Active Substance: AFATINIB DIMALEATE
     Route: 048
     Dates: start: 20220127, end: 20220221
  3. TRADITIONAL CHINESE MEDICINE (UNK INGREDIENTS) [Concomitant]
     Route: 047
     Dates: start: 20220127, end: 202202

REACTIONS (1)
  - Abdominal discomfort [Recovered/Resolved]

NARRATIVE: CASE EVENT DATE: 20220127
